FAERS Safety Report 6862051-7 (Version None)
Quarter: 2010Q3

REPORT INFORMATION
  Report Type: 
  Country: None (occurrence: None)
  Receive Date: 20100719
  Receipt Date: 20100709
  Transmission Date: 20110219
  Serious: Yes (Other)
  Sender: FDA-Public Use
  Company Number: 20100307

PATIENT
  Age: 78 Year
  Sex: Male

DRUGS (1)
  1. VENOFER [Suspect]
     Indication: ANAEMIA
     Dosage: 400 MG IN 250 ML NS, 20 MG/ML
     Dates: start: 20100304, end: 20100304

REACTIONS (2)
  - INFUSION SITE EXTRAVASATION [None]
  - SKIN DISCOLOURATION [None]
